FAERS Safety Report 7518505-3 (Version None)
Quarter: 2011Q2

REPORT INFORMATION
  Report Type: 
  Country: None (occurrence: None)
  Receive Date: 20110602
  Receipt Date: 20110526
  Transmission Date: 20111010
  Serious: Yes (Hospitalization)
  Sender: FDA-Public Use
  Company Number: GB-ASTELLAS-2011EU003166

PATIENT

DRUGS (2)
  1. VESICARE [Suspect]
     Dosage: 5 MG, UNKNOWN/D
     Route: 065
  2. VESICARE [Suspect]
     Dosage: 10 MG, UNKNOWN/D
     Route: 065

REACTIONS (2)
  - BLINDNESS [None]
  - HALLUCINATION [None]
